FAERS Safety Report 5619953-9 (Version None)
Quarter: 2008Q1

REPORT INFORMATION
  Report Type: 
  Country: None (occurrence: None)
  Receive Date: 20080208
  Receipt Date: 20080205
  Transmission Date: 20080703
  Serious: Yes (Life-Threatening)
  Sender: FDA-Public Use
  Company Number: JP-BRISTOL-MYERS SQUIBB COMPANY-14068589

PATIENT
  Age: 6 Decade
  Sex: Male

DRUGS (5)
  1. TAXOL [Suspect]
     Indication: NON-SMALL CELL LUNG CANCER
     Route: 041
     Dates: start: 20080101
  2. PARAPLATIN [Suspect]
     Indication: NON-SMALL CELL LUNG CANCER
     Route: 041
     Dates: start: 20080101
  3. DECADRON [Concomitant]
     Route: 041
  4. ZANTAC [Concomitant]
     Route: 041
  5. KYTRIL [Concomitant]
     Route: 041

REACTIONS (1)
  - PANCREATITIS ACUTE [None]
